FAERS Safety Report 21447809 (Version 1)
Quarter: 2022Q4

REPORT INFORMATION
  Report Type: Spontaneous
  Country: DE (occurrence: DE)
  Receive Date: 20221012
  Receipt Date: 20221012
  Transmission Date: 20230113
  Serious: Yes (Other)
  Sender: FDA-Public Use
  Company Number: DE-009507513-2210DEU001498

PATIENT
  Sex: Female

DRUGS (1)
  1. INTERFERON ALFA-2B [Suspect]
     Active Substance: INTERFERON ALFA-2B
     Indication: Malignant melanoma
     Dosage: UNK
     Dates: end: 202110

REACTIONS (6)
  - Malignant neoplasm progression [Unknown]
  - Tumour ulceration [Unknown]
  - Oxygen saturation decreased [Unknown]
  - Blood methaemoglobin present [Unknown]
  - Ill-defined disorder [Unknown]
  - Product availability issue [Unknown]

NARRATIVE: CASE EVENT DATE: 20211001
